FAERS Safety Report 18284691 (Version 1)
Quarter: 2020Q3

REPORT INFORMATION
  Report Type: Spontaneous
  Country: ES (occurrence: ES)
  Receive Date: 20200919
  Receipt Date: 20200919
  Transmission Date: 20201103
  Serious: Yes (Hospitalization)
  Sender: FDA-Public Use
  Company Number: ES-AUROBINDO-AUR-APL-2020-048337

PATIENT
  Age: 69 Year
  Sex: Female
  Weight: 61 kg

DRUGS (6)
  1. FOLINIC ACID [Suspect]
     Active Substance: LEUCOVORIN
     Indication: GASTRIC CANCER
     Dosage: 300 MILLIGRAM (300 MG, CYCLIC (ONCE IN 2 WEEKS))
     Route: 042
     Dates: start: 20200716
  2. FLUOROURACIL. [Suspect]
     Active Substance: FLUOROURACIL
     Indication: GASTRIC CANCER
     Dosage: 3848 MILLIGRAM, CYCLE (3848 MG, CYCLIC (ONCE IN 2 WEEKS))
     Route: 042
     Dates: start: 20200716
  3. AVELUMAB [Concomitant]
     Active Substance: AVELUMAB
     Indication: GASTRIC CANCER
     Dosage: 590 MILLIGRAM, CYCLE (590 MG, CYCLIC (ONCE IN 2 WEEKS))
     Route: 042
     Dates: start: 20200716
  4. OXALIPLATIN. [Suspect]
     Active Substance: OXALIPLATIN
     Indication: GASTRIC CANCER
     Dosage: 126 MILLIGRAM, CYCLE (126 MG, CYCLIC (ONCE IN 2 WEEKS))
     Route: 042
     Dates: start: 20200716
  5. DOCETAXEL. [Suspect]
     Active Substance: DOCETAXEL
     Indication: GASTRIC CANCER
     Dosage: 74 MILLIGRAM, CYCLE (74 MG, CYCLIC (ONCE IN 2 WEEKS))
     Route: 042
     Dates: start: 20200716
  6. AVELUMAB [Concomitant]
     Active Substance: AVELUMAB
     Dosage: 590 MILLIGRAM, CYCLE (590 MG, CYCLIC (ONCE IN 2 WEEKS))
     Route: 042
     Dates: start: 20200827

REACTIONS (1)
  - Hypophagia [Not Recovered/Not Resolved]

NARRATIVE: CASE EVENT DATE: 20200828
